FAERS Safety Report 4781205-7 (Version None)
Quarter: 2005Q3

REPORT INFORMATION
  Report Type: 
  Country: None (occurrence: None)
  Receive Date: 20050914
  Receipt Date: 20050105
  Transmission Date: 20060218
  Serious: Yes (Hospitalization)
  Sender: FDA-Public Use
  Company Number: 163-20785-05010066

PATIENT
  Age: 47 Year
  Sex: Male
  Weight: 102 kg

DRUGS (35)
  1. THALOMID [Suspect]
     Indication: MULTIPLE MYELOMA
     Dosage: 200 MG, QHS, ORAL; SEE IMAGE
     Route: 048
     Dates: start: 20041001, end: 20050321
  2. THALOMID [Suspect]
     Indication: MULTIPLE MYELOMA
     Dosage: 200 MG, QHS, ORAL; SEE IMAGE
     Route: 048
     Dates: start: 20040327
  3. THALOMID [Suspect]
     Indication: MULTIPLE MYELOMA
     Dosage: 200 MG, QHS, ORAL; SEE IMAGE
     Route: 048
     Dates: start: 20040503
  4. THALOMID [Suspect]
     Indication: MULTIPLE MYELOMA
     Dosage: 200 MG, QHS, ORAL; SEE IMAGE
     Route: 048
     Dates: start: 20040701
  5. MELPHALAN (MELPHALAN) (UNKNOWN) [Suspect]
     Indication: MULTIPLE MYELOMA
     Dosage: 280 MG, DAILY, CYCLE 2, INTRAVENOUS; SEE IMAGE
     Route: 042
     Dates: start: 20040706, end: 20040706
  6. MELPHALAN (MELPHALAN) (UNKNOWN) [Suspect]
     Indication: MULTIPLE MYELOMA
     Dosage: 280 MG, DAILY, CYCLE 2, INTRAVENOUS; SEE IMAGE
     Route: 042
     Dates: start: 20040909, end: 20040909
  7. VELCADE [Suspect]
     Indication: MULTIPLE MYELOMA
     Dosage: 2 MG, QD, INTRAVENOUS
     Route: 042
     Dates: start: 20040101
  8. VELCADE [Suspect]
     Indication: MULTIPLE MYELOMA
     Dosage: 2 MG, QD, INTRAVENOUS
     Route: 042
     Dates: start: 20050120
  9. VELCADE [Suspect]
     Indication: MULTIPLE MYELOMA
     Dosage: 2 MG, QD, INTRAVENOUS
     Route: 042
     Dates: start: 20050123
  10. VELCADE [Suspect]
     Indication: MULTIPLE MYELOMA
     Dosage: 2 MG, QD, INTRAVENOUS
     Route: 042
     Dates: start: 20050128
  11. DEXAMETHASONE [Suspect]
     Indication: MULTIPLE MYELOMA
     Dosage: 40 MG, QD, ORAL; SEE IMAGE
     Route: 048
     Dates: start: 20050120, end: 20050123
  12. DEXAMETHASONE [Suspect]
     Indication: MULTIPLE MYELOMA
     Dosage: 40 MG, QD, ORAL; SEE IMAGE
     Route: 048
     Dates: start: 20050310, end: 20050314
  13. DEXAMETHASONE [Suspect]
     Indication: MULTIPLE MYELOMA
     Dosage: 40 MG, QD, ORAL; SEE IMAGE
     Route: 048
     Dates: start: 20040101
  14. ADRIAMYCIN PFS [Suspect]
     Indication: MULTIPLE MYELOMA
     Dosage: 15 MG, QD, INTRAVENOUS
     Route: 042
     Dates: start: 20050120, end: 20050123
  15. ADRIAMYCIN PFS [Suspect]
     Indication: MULTIPLE MYELOMA
     Dosage: 15 MG, QD, INTRAVENOUS
     Route: 042
     Dates: start: 20040101
  16. CYCLOPHOSPHAMIDE [Suspect]
     Indication: MULTIPLE MYELOMA
     Dosage: 600 MG, QD, INTRAVENOUS
     Route: 042
     Dates: start: 20050120, end: 20050123
  17. CYCLOPHOSPHAMIDE [Suspect]
     Indication: MULTIPLE MYELOMA
     Dosage: 600 MG, QD, INTRAVENOUS
     Route: 042
     Dates: start: 20040101
  18. ETOPOSIDE [Suspect]
     Indication: MULTIPLE MYELOMA
     Dosage: 60 MG, QD, INTRAVENOUS
     Route: 042
     Dates: start: 20050120, end: 20050123
  19. ETOPOSIDE [Suspect]
     Indication: MULTIPLE MYELOMA
     Dosage: 60 MG, QD, INTRAVENOUS
     Route: 042
     Dates: start: 20040101
  20. CISPLATIN [Suspect]
     Dosage: 0 MG, INTRAVENOUS
     Route: 042
     Dates: end: 20040101
  21. CISPLATIN [Suspect]
     Dosage: 0 MG, INTRAVENOUS
     Route: 042
     Dates: start: 20050120, end: 20050123
  22. LOVENOX (HEPARIN-FRACTION, SODIUM SALT) (UNKNOWN) [Concomitant]
  23. G-CSF (GRANULOCYTE COLONY STIMULATING FACTOR) (UNKNOWN) [Concomitant]
  24. VANCOMYCIN [Concomitant]
  25. PRIMAXIN (PRIMAXIN) (UNKNOWN) [Concomitant]
  26. DIFLUCAN (FLUCONAZOLE) (UNKNOWN) [Concomitant]
  27. LOPERAMIDE (LOPERAMIDE) (UNKNOWN) [Concomitant]
  28. ACYCLOVIR (ACICLOVIR) (UNKNOWN) [Concomitant]
  29. FOLIC ACID (FOLIC ACID) (UNKNOWN) [Concomitant]
  30. MULTIVITAMINS (MULTIVITAMINS) (TABLETS) [Concomitant]
  31. HEPARIN (HEPARIN) (UNKNOWN) [Concomitant]
  32. PANTOPRAZOLE SODIUM [Concomitant]
  33. FLAGYL (METRONIDAZOLE) (UNKNOWN) [Concomitant]
  34. ZOLOFT [Concomitant]
  35. FENTANYL (FENTANYL) (POULTICE OR PATCH) [Concomitant]

REACTIONS (10)
  - BACTERAEMIA [None]
  - DEEP VEIN THROMBOSIS [None]
  - FEBRILE NEUTROPENIA [None]
  - HYPOTENSION [None]
  - PNEUMONIA [None]
  - RENAL FAILURE ACUTE [None]
  - SEPSIS [None]
  - STAPHYLOCOCCAL INFECTION [None]
  - SYNCOPE [None]
  - THROMBOPHLEBITIS SEPTIC [None]
